FAERS Safety Report 6139944-1 (Version None)
Quarter: 2009Q2

REPORT INFORMATION
  Report Type: 
  Country: None (occurrence: None)
  Receive Date: 20090401
  Receipt Date: 20090324
  Transmission Date: 20091009
  Serious: Yes (Other)
  Sender: FDA-Public Use
  Company Number: US-ELI_LILLY_AND_COMPANY-US200903006161

PATIENT
  Sex: Female

DRUGS (5)
  1. HUMALOG [Suspect]
     Dosage: UNK, UNK
  2. HUMALOG [Suspect]
     Dosage: UNK, UNK
  3. DIFLUCAN [Concomitant]
     Indication: FUNGAL INFECTION
     Dates: start: 20090201
  4. LEVOXYL [Concomitant]
  5. LANTUS [Concomitant]

REACTIONS (12)
  - ARTHRALGIA [None]
  - BACK PAIN [None]
  - BLOOD GLUCOSE DECREASED [None]
  - BLOOD GLUCOSE INCREASED [None]
  - CONCUSSION [None]
  - DRUG DISPENSING ERROR [None]
  - FUNGAL INFECTION [None]
  - HUNGER [None]
  - INCORRECT DRUG DOSAGE FORM ADMINISTERED [None]
  - IRRITABILITY [None]
  - PAIN [None]
  - ROAD TRAFFIC ACCIDENT [None]
